FAERS Safety Report 4657102-4 (Version None)
Quarter: 2005Q2

REPORT INFORMATION
  Report Type: 
  Country: None (occurrence: None)
  Receive Date: 20050408
  Receipt Date: 20050301
  Transmission Date: 20051028
  Serious: No
  Sender: FDA-Public Use
  Company Number: 230781K05USA

PATIENT
  Age: 52 Year
  Sex: Female
  Weight: 54.4316 kg

DRUGS (19)
  1. REBIF [Suspect]
     Indication: MULTIPLE SCLEROSIS
     Dosage: 44 MCG, 3 IN 1 WEEKS, SUBCUTANEOUS
     Route: 058
     Dates: start: 20040324, end: 20050301
  2. TOPAMAX [Concomitant]
  3. LIPITOR [Concomitant]
  4. DICYCLOMINE HYDROCHLORIDE(DICYCLOVERINE HYDROCHLORIDE) [Concomitant]
  5. ELAVIL [Concomitant]
  6. STRATTERA [Concomitant]
  7. ZOLOFT [Concomitant]
  8. PROVIGIL [Concomitant]
  9. BACLOFEN [Concomitant]
  10. VITAMIN B12 [Concomitant]
  11. VITAMIN D [Concomitant]
  12. VITAMIN E [Concomitant]
  13. OMEGA 3 FISH OIL(FISH OIL) [Concomitant]
  14. LECITHIN(LECITHIN) [Concomitant]
  15. VITAMIN C(ASCORBIC ACID) [Concomitant]
  16. EVENING PRIMOSE OIL(EVENING PRIMROSE OIL) [Concomitant]
  17. PHYTONADIONE [Concomitant]
  18. MELATONIN(MELATONIN) [Concomitant]
  19. ATIVAN [Concomitant]

REACTIONS (9)
  - ABDOMINAL PAIN [None]
  - ANAEMIA [None]
  - ARTHRALGIA [None]
  - DECREASED APPETITE [None]
  - FATIGUE [None]
  - FEELING ABNORMAL [None]
  - NERVOUS SYSTEM DISORDER [None]
  - PAIN IN EXTREMITY [None]
  - WEIGHT DECREASED [None]
